FAERS Safety Report 24230004 (Version 2)
Quarter: 2024Q3

REPORT INFORMATION
  Report Type: Spontaneous
  Country: US (occurrence: US)
  Receive Date: 20240820
  Receipt Date: 20240820
  Transmission Date: 20241016
  Serious: No
  Sender: SANDOZ
  Company Number: US-SANDOZ-SDZ2024US073554

PATIENT
  Sex: Male

DRUGS (1)
  1. ADALIMUMAB [Suspect]
     Active Substance: ADALIMUMAB
     Indication: Crohn^s disease
     Dosage: 40 MG, ONCE EVERY TWO WEEKS
     Route: 058
     Dates: start: 20240703, end: 20240717

REACTIONS (2)
  - Pain in extremity [Recovering/Resolving]
  - Injection site pain [Recovering/Resolving]
